FAERS Safety Report 8612197-8 (Version None)
Quarter: 2012Q3

REPORT INFORMATION
  Report Type: 
  Country: None (occurrence: None)
  Receive Date: 20120822
  Receipt Date: 20120816
  Transmission Date: 20120928
  Serious: Yes (Hospitalization, Other)
  Sender: FDA-Public Use
  Company Number: FR-PFIZER INC-2012200339

PATIENT
  Age: 19 Year
  Sex: Female
  Weight: 60 kg

DRUGS (2)
  1. PENICILLIN NOS [Concomitant]
     Indication: TONSILLITIS
     Dosage: UNK
     Dates: start: 20120708, end: 20120718
  2. ADVIL [Suspect]
     Indication: NECK PAIN
     Dosage: 200 MG
     Route: 048
     Dates: start: 20120719, end: 20120721

REACTIONS (14)
  - ABDOMINAL PAIN UPPER [None]
  - ABSCESS [None]
  - TACHYCARDIA [None]
  - INFLUENZA LIKE ILLNESS [None]
  - TOXIC SHOCK SYNDROME STAPHYLOCOCCAL [None]
  - TOXICITY TO VARIOUS AGENTS [None]
  - LUNG INFECTION [None]
  - MYALGIA [None]
  - SEPTIC SHOCK [None]
  - DEAFNESS [None]
  - ACCIDENTAL OVERDOSE [None]
  - COUGH [None]
  - LIVER INJURY [None]
  - PYREXIA [None]
